FAERS Safety Report 4314789-3 (Version None)
Quarter: 2004Q1

REPORT INFORMATION
  Report Type: 
  Country: None (occurrence: None)
  Receive Date: 20040308
  Receipt Date: 20040224
  Transmission Date: 20041129
  Serious: Yes (Life-Threatening)
  Sender: FDA-Public Use
  Company Number: 2004SE00943

PATIENT
  Age: 80 Year
  Sex: Female
  Weight: 60 kg

DRUGS (4)
  1. BLOPRESS [Suspect]
     Indication: HYPERTENSION
     Dosage: 12 MG QD PO
     Route: 048
     Dates: start: 20021202
  2. ALPHA GLUCOSIDASE INHIBITORS [Concomitant]
  3. CHOLESTEROL - AND  TRIGLYCERIDE REDUCERS [Concomitant]
  4. SULFONAMIDES, UREA DERIVADES [Concomitant]

REACTIONS (1)
  - JAUNDICE CHOLESTATIC [None]
